FAERS Safety Report 12460702 (Version 1)
Quarter: 2016Q2

REPORT INFORMATION
  Report Type: Spontaneous
  Country: GB (occurrence: GB)
  Receive Date: 20160613
  Receipt Date: 20160613
  Transmission Date: 20160815
  Serious: Yes (Other)
  Sender: FDA-Public Use
  Company Number: GB-PFIZER INC-2016290935

PATIENT
  Age: 41 Year
  Sex: Male
  Weight: 49 kg

DRUGS (14)
  1. FOSTAIR [Concomitant]
     Active Substance: BECLOMETHASONE\FORMOTEROL
     Dosage: 2 DF, 2X/DAY
     Dates: start: 20160204
  2. OMEPRAZOLE. [Concomitant]
     Active Substance: OMEPRAZOLE
     Dosage: 1 DF, 2 A DAY AS NEEDED
     Dates: start: 20160204
  3. VENTOLIN [Concomitant]
     Active Substance: ALBUTEROL SULFATE
     Dosage: 2 DF, UNK
     Route: 055
     Dates: start: 20160204
  4. DICLOFENAC SODIUM. [Concomitant]
     Active Substance: DICLOFENAC SODIUM
     Dosage: 0.5 DF, TWICE
     Dates: start: 20160204
  5. IBUPROFEN. [Suspect]
     Active Substance: IBUPROFEN
     Dosage: UNK
     Dates: start: 20151218
  6. CARBOCISTEINE [Concomitant]
     Active Substance: CARBOCYSTEINE
     Dosage: 2 DF, 2X/DAY
     Dates: start: 20151019
  7. DOXYCYCLINE. [Concomitant]
     Active Substance: DOXYCYCLINE
     Dosage: 1 DF, (ONCE OR TWICE A DAY)
     Dates: start: 20160120
  8. HUMULIN I [Concomitant]
     Active Substance: INSULIN HUMAN
     Dosage: USE AS DIRECTED
     Dates: start: 20160523
  9. NOVORAPID [Concomitant]
     Active Substance: INSULIN ASPART
     Dosage: USE AS DIRECTED
     Dates: start: 20160523
  10. IPRATROPIUM BROMIDE. [Concomitant]
     Active Substance: IPRATROPIUM BROMIDE
     Dosage: 1 DF, 3X/DAY (AS DIRECTED)
     Dates: start: 20160204
  11. PREDNISOLONE. [Concomitant]
     Active Substance: PREDNISOLONE
     Dosage: 1 DF, 1X/DAY
     Dates: start: 20160105
  12. CORSODYL [Concomitant]
     Active Substance: CHLORHEXIDINE GLUCONATE
     Dosage: 1 DF, 2X/DAY
     Dates: start: 20160204
  13. METOCLOPRAMIDE. [Concomitant]
     Active Substance: METOCLOPRAMIDE
     Dosage: 1 DF, THREE TIMES
     Dates: start: 20160120
  14. VITAMINS A + D [Concomitant]
     Dosage: 1 DF, 2X/DAY
     Dates: start: 20160129

REACTIONS (1)
  - Malaise [Recovered/Resolved]

NARRATIVE: CASE EVENT DATE: 20160525
